FAERS Safety Report 8802672 (Version 1)
Quarter: 2012Q4

REPORT INFORMATION
  Report Type: 
  Country: US (occurrence: US)
  Receive Date: 20120921
  Receipt Date: 20120921
  Transmission Date: 20130627
  Serious: Yes (Other)
  Sender: FDA-Public Use
  Company Number: US-PFIZER INC-2012233494

PATIENT
  Sex: Female

DRUGS (2)
  1. CHANTIX [Suspect]
     Indication: CHRONIC OBSTRUCTIVE PULMONARY DISEASE
  2. CHANTIX [Suspect]
     Indication: OXYGEN SUPPLEMENTATION

REACTIONS (11)
  - Panic attack [Unknown]
  - Chest discomfort [Unknown]
  - Dyspnoea [Unknown]
  - Asthenia [Unknown]
  - Nervousness [Unknown]
  - Depression [Unknown]
  - Nightmare [Recovered/Resolved]
  - Fatigue [Unknown]
  - Decreased appetite [Unknown]
  - Fear [Unknown]
  - Negative thoughts [Unknown]
